FAERS Safety Report 19674665 (Version 1)
Quarter: 2021Q3

REPORT INFORMATION
  Report Type: Spontaneous
  Country: NO (occurrence: NO)
  Receive Date: 20210809
  Receipt Date: 20210809
  Transmission Date: 20211014
  Serious: Yes (Other)
  Sender: FDA-Public Use
  Company Number: NO-BAYER-2021-183523

PATIENT
  Age: 21 Year
  Sex: Female
  Weight: 60 kg

DRUGS (1)
  1. YASMINELLE [Suspect]
     Active Substance: DROSPIRENONE
     Indication: CONTRACEPTION
     Dosage: UNK
     Route: 048
     Dates: start: 2017, end: 202012

REACTIONS (6)
  - Depression [Recovered/Resolved with Sequelae]
  - Obsessive-compulsive disorder [Unknown]
  - Fatigue [Recovering/Resolving]
  - Pyrexia [Recovering/Resolving]
  - Influenza [Recovered/Resolved with Sequelae]
  - Anxiety [Recovering/Resolving]
